FAERS Safety Report 5808516-8 (Version None)
Quarter: 2008Q3

REPORT INFORMATION
  Report Type: 
  Country: None (occurrence: None)
  Receive Date: 20080714
  Receipt Date: 20080709
  Transmission Date: 20090109
  Serious: Yes (Life-Threatening)
  Sender: FDA-Public Use
  Company Number: JP-ELI_LILLY_AND_COMPANY-JP200806005724

PATIENT
  Age: 68 Year
  Sex: Male
  Weight: 60.8 kg

DRUGS (13)
  1. ZYPREXA [Suspect]
     Indication: INSOMNIA
     Dosage: 5 MG, DAILY (1/D)
     Route: 048
     Dates: start: 20080610, end: 20080610
  2. ZYPREXA [Suspect]
     Dosage: 10 MG, DAILY (1/D)
     Route: 048
     Dates: start: 20080611, end: 20080619
  3. ZYPREXA [Suspect]
     Dosage: 20 MG, DAILY (1/D)
     Route: 048
     Dates: start: 20080620, end: 20080622
  4. ZYPREXA [Suspect]
     Dosage: 10 MG, DAILY (1/D)
     Route: 048
     Dates: start: 20080623, end: 20080624
  5. GLYSENNID [Concomitant]
     Dosage: 12 MG, UNK
     Route: 048
     Dates: start: 20080616, end: 20080625
  6. EXCEGRAN [Concomitant]
     Dosage: 200 MG, UNK
  7. OMEPRAL [Concomitant]
     Dosage: 20 MG, UNK
  8. FUNGIZONE [Concomitant]
     Dosage: 3 ML, UNK
  9. RISPERDAL [Concomitant]
     Dosage: 1 MG, AS NEEDED
  10. MAGNESIUM OXIDE [Concomitant]
     Dosage: 1.5 G, UNK
  11. BETAMETHASONE [Concomitant]
     Dosage: 4 MG, UNK
  12. SEROQUEL [Concomitant]
     Indication: DELIRIUM
     Dosage: 300 MG, UNK
     Dates: start: 20080623, end: 20080624
  13. BROACT [Concomitant]
     Dates: start: 20080624, end: 20080625

REACTIONS (1)
  - LIVER DISORDER [None]
